FAERS Safety Report 9792126 (Version 3)
Quarter: 2014Q3

REPORT INFORMATION
  Report Type: Spontaneous
  Country: US (occurrence: US)
  Receive Date: 20140102
  Receipt Date: 20140902
  Transmission Date: 20150326
  Serious: Yes (Hospitalization, Disabling, Other)
  Sender: FDA-Public Use
  Company Number: US-009507513-1312USA012716

PATIENT
  Sex: Female
  Weight: 78.5 kg

DRUGS (1)
  1. NUVARING [Suspect]
     Active Substance: ETHINYL ESTRADIOL\ETONOGESTREL
     Indication: CONTRACEPTION
     Dosage: UNK
     Route: 067
     Dates: start: 2010, end: 20120301

REACTIONS (3)
  - Cerebellar infarction [Unknown]
  - Tricuspid valve incompetence [Unknown]
  - Thalamic infarction [Unknown]

NARRATIVE: CASE EVENT DATE: 20120301
